FAERS Safety Report 26094045 (Version 1)
Quarter: 2025Q4

REPORT INFORMATION
  Report Type: Spontaneous
  Country: US (occurrence: US)
  Receive Date: 20251126
  Receipt Date: 20251126
  Transmission Date: 20260118
  Serious: Yes (Other)
  Sender: ABBVIE
  Company Number: US-ABBVIE-6563347

PATIENT
  Age: 76 Year
  Sex: Female

DRUGS (1)
  1. SYNTHROID [Suspect]
     Active Substance: LEVOTHYROXINE SODIUM
     Indication: Hypothyroidism
     Route: 048

REACTIONS (20)
  - Parathyroidectomy [Unknown]
  - Nasopharyngitis [Unknown]
  - Reaction to excipient [Unknown]
  - Feeling abnormal [Unknown]
  - Blood thyroid stimulating hormone decreased [Unknown]
  - Unevaluable event [Unknown]
  - Dysphonia [Unknown]
  - Swelling face [Unknown]
  - Depression [Unknown]
  - Brain fog [Unknown]
  - Alopecia [Unknown]
  - Asthenia [Unknown]
  - Muscular weakness [Unknown]
  - Constipation [Unknown]
  - Myalgia [Unknown]
  - Hyperhidrosis [Unknown]
  - Arthralgia [Unknown]
  - Hot flush [Not Recovered/Not Resolved]
  - Feeling of body temperature change [Unknown]
  - Onychoclasis [Unknown]

NARRATIVE: CASE EVENT DATE: 20251101
